FAERS Safety Report 21950063 (Version 1)
Quarter: 2023Q1

REPORT INFORMATION
  Report Type: Report from Study
  Country: US (occurrence: US)
  Receive Date: 20230203
  Receipt Date: 20230203
  Transmission Date: 20230417
  Serious: Yes (Other)
  Sender: FDA-Public Use
  Company Number: US-UCBSA-2023003875

PATIENT
  Sex: Female
  Weight: 79.4 kg

DRUGS (10)
  1. ROTIGOTINE [Suspect]
     Active Substance: ROTIGOTINE
     Indication: Restless legs syndrome
     Dosage: 8MG EVERY DAY AT NIGHT
     Route: 062
  2. XANAX [Concomitant]
     Active Substance: ALPRAZOLAM
     Indication: Product used for unknown indication
  3. ASPIRIN [Concomitant]
     Active Substance: ASPIRIN
     Indication: Product used for unknown indication
  4. LIPITOR [Concomitant]
     Active Substance: ATORVASTATIN CALCIUM
     Indication: Product used for unknown indication
  5. CALCIUM CARBONATE\CHOLECALCIFEROL [Concomitant]
     Active Substance: CALCIUM CARBONATE\CHOLECALCIFEROL
     Indication: Product used for unknown indication
  6. KLONOPIN [Concomitant]
     Active Substance: CLONAZEPAM
     Indication: Product used for unknown indication
  7. FAMVIR [Concomitant]
     Active Substance: FAMCICLOVIR
     Indication: Product used for unknown indication
  8. TRICOR [Concomitant]
     Active Substance: FENOFIBRATE
     Indication: Product used for unknown indication
  9. REQUIP [Concomitant]
     Active Substance: ROPINIROLE HYDROCHLORIDE
     Indication: Restless legs syndrome
  10. ZOLOFT [Concomitant]
     Active Substance: SERTRALINE HYDROCHLORIDE
     Indication: Product used for unknown indication

REACTIONS (5)
  - Obstructive sleep apnoea syndrome [Unknown]
  - Irregular sleep wake rhythm disorder [Unknown]
  - Positive airway pressure therapy [Unknown]
  - Medical device discomfort [Unknown]
  - Dry mouth [Unknown]
